FAERS Safety Report 14897488 (Version 2)
Quarter: 2022Q1

REPORT INFORMATION
  Report Type: Spontaneous
  Country: US (occurrence: US)
  Receive Date: 20180515
  Receipt Date: 20220302
  Transmission Date: 20220423
  Serious: Yes (Other)
  Sender: FDA-Public Use
  Company Number: US-BAYER-2018-090589

PATIENT
  Sex: Female

DRUGS (4)
  1. GADAVIST [Suspect]
     Active Substance: GADOBUTROL
     Indication: Magnetic resonance imaging
     Dosage: UNK
  2. GADAVIST [Suspect]
     Active Substance: GADOBUTROL
     Indication: Product used for unknown indication
     Dosage: 1, QD
     Route: 065
  3. OMNISCAN [Suspect]
     Active Substance: GADODIAMIDE
     Indication: Magnetic resonance imaging
     Dosage: UNK
  4. OMNISCAN [Suspect]
     Active Substance: GADODIAMIDE
     Indication: Product used for unknown indication
     Dosage: 1 , QD
     Route: 065

REACTIONS (8)
  - Gadolinium deposition disease [Unknown]
  - Contrast media deposition [None]
  - Bone pain [Unknown]
  - Pain in extremity [Unknown]
  - Pain in extremity [Unknown]
  - Headache [Unknown]
  - Cognitive disorder [Unknown]
  - Pain [Unknown]
